FAERS Safety Report 23027539 (Version 2)
Quarter: 2023Q4

REPORT INFORMATION
  Report Type: Report from Study
  Country: US (occurrence: US)
  Receive Date: 20231004
  Receipt Date: 20231005
  Transmission Date: 20240110
  Serious: No
  Sender: FDA-Public Use
  Company Number: US-BRISTOL-MYERS SQUIBB COMPANY-2023-139794

PATIENT
  Age: 60 Year
  Sex: Male
  Weight: 74.84 kg

DRUGS (2)
  1. REVLIMID [Suspect]
     Active Substance: LENALIDOMIDE
     Indication: Mantle cell lymphoma
     Dosage: FREQUENCY: 21
     Dates: start: 20230831
  2. REVLIMID [Suspect]
     Active Substance: LENALIDOMIDE
     Indication: Follicular lymphoma
     Dosage: FREQUENCY: DAILY FOR 21 DAYS ON THEN 7 DAYS OFF?ONGOING
     Route: 048
     Dates: start: 20230906

REACTIONS (10)
  - Dizziness [Unknown]
  - Confusional state [Unknown]
  - Feeling jittery [Unknown]
  - Thinking abnormal [Unknown]
  - Insomnia [Unknown]
  - Nightmare [Unknown]
  - Fatigue [Unknown]
  - Joint swelling [Unknown]
  - Tremor [Unknown]
  - Feeling abnormal [Unknown]

NARRATIVE: CASE EVENT DATE: 20230901
